FAERS Safety Report 16010843 (Version 1)
Quarter: 2019Q1

REPORT INFORMATION
  Report Type: Spontaneous
  Country: NL (occurrence: NL)
  Receive Date: 20190227
  Receipt Date: 20190227
  Transmission Date: 20190418
  Serious: Yes (Other)
  Sender: FDA-Public Use
  Company Number: NL-ASTRAZENECA-2019SE30708

PATIENT
  Sex: Male

DRUGS (3)
  1. LOSEC [Suspect]
     Active Substance: OMEPRAZOLE
     Indication: DIAPHRAGMATIC HERNIA
     Route: 048
  2. LOSEC [Suspect]
     Active Substance: OMEPRAZOLE
     Indication: DIAPHRAGMATIC HERNIA
     Route: 048
  3. LOSEC [Suspect]
     Active Substance: OMEPRAZOLE
     Indication: DIAPHRAGMATIC HERNIA
     Route: 048

REACTIONS (6)
  - Dysphonia [Unknown]
  - Neuroendocrine tumour [Unknown]
  - Rebound effect [Unknown]
  - Drug ineffective [Unknown]
  - Off label use [Unknown]
  - Intentional product misuse [Unknown]
